FAERS Safety Report 9997671 (Version 5)
Quarter: 2014Q3

REPORT INFORMATION
  Report Type: Spontaneous
  Country: US (occurrence: None)
  Receive Date: 20140225
  Receipt Date: 20140715
  Transmission Date: 20150326
  Serious: Yes (Other)
  Sender: FDA-Public Use
  Company Number: 2013-077

PATIENT
  Age: 35 Year
  Weight: 105 kg

DRUGS (4)
  1. PRIALT [Suspect]
     Active Substance: ZICONOTIDE ACETATE
     Indication: PAIN
     Route: 037
     Dates: start: 201206
  2. OXYCODONE HCL [Concomitant]
     Active Substance: OXYCODONE HYDROCHLORIDE
  3. LYRICA [Suspect]
     Active Substance: PREGABALIN
  4. PRIALT [Suspect]
     Active Substance: ZICONOTIDE ACETATE
     Indication: COMPLEX REGIONAL PAIN SYNDROME
     Route: 037
     Dates: start: 201206

REACTIONS (32)
  - Pain in extremity [None]
  - Cardiac disorder [None]
  - Photopsia [None]
  - Pain [None]
  - Decreased appetite [None]
  - Drug ineffective [None]
  - Middle ear effusion [None]
  - Hallucination, auditory [None]
  - Medical device pain [None]
  - Feeling abnormal [None]
  - Hallucination, tactile [None]
  - Hallucination, visual [None]
  - Lip swelling [None]
  - Weight decreased [None]
  - Amnesia [None]
  - Tongue exfoliation [None]
  - Device issue [None]
  - Impaired driving ability [None]
  - Disturbance in attention [None]
  - Suicidal ideation [None]
  - Overdose [None]
  - Homicidal ideation [None]
  - Convulsion [None]
  - Hallucination [None]
  - Fall [None]
  - Drug dispensing error [None]
  - Dry mouth [None]
  - Mastication disorder [None]
  - Sinus disorder [None]
  - Hypoaesthesia oral [None]
  - Joint instability [None]
  - Depressed mood [None]

NARRATIVE: CASE EVENT DATE: 2012
